FAERS Safety Report 23339254 (Version 3)
Quarter: 2024Q1

REPORT INFORMATION
  Report Type: Report from Study
  Country: US (occurrence: US)
  Receive Date: 20231226
  Receipt Date: 20240311
  Transmission Date: 20240409
  Serious: Yes (Other)
  Sender: FDA-Public Use
  Company Number: US-ALNYLAM PHARMACEUTICALS, INC.-ALN-2023-006852

PATIENT

DRUGS (1)
  1. GIVLAARI [Suspect]
     Active Substance: GIVOSIRAN SODIUM
     Indication: Product used for unknown indication
     Dosage: 178 MILLIGRAM, MONTHLY (189 MG/ML)
     Route: 058
     Dates: start: 20230601, end: 20230601

REACTIONS (3)
  - Generalised tonic-clonic seizure [Unknown]
  - Porphyria acute [Unknown]
  - Weight increased [Unknown]

NARRATIVE: CASE EVENT DATE: 20231201
